FAERS Safety Report 9579985 (Version 1)
Quarter: 2013Q3

REPORT INFORMATION
  Report Type: Spontaneous
  Country: JP (occurrence: None)
  Receive Date: 20130930
  Receipt Date: 20130930
  Transmission Date: 20140515
  Serious: Yes (Hospitalization)
  Sender: FDA-Public Use
  Company Number: IPC201309-000366

PATIENT
  Age: 75 Year
  Sex: Female
  Weight: 51.7 kg

DRUGS (4)
  1. FUROSEMIDE [Suspect]
  2. DIGOXIN (DIGOXIN) (DIGOXIN) [Suspect]
  3. CAPTOPRIL (CAPTOPRIL) (CAPTOPRIL) [Suspect]
  4. ASPIRIN (ACETYLSALICYLIC ACID) (ACETYLSALICYLIC ACID) [Suspect]

REACTIONS (4)
  - Ventricular tachycardia [None]
  - Hypotension [None]
  - Ventricular extrasystoles [None]
  - Cheyne-Stokes respiration [None]
